FAERS Safety Report 6907804-1 (Version None)
Quarter: 2010Q3

REPORT INFORMATION
  Report Type: 
  Country: None (occurrence: None)
  Receive Date: 20100712
  Receipt Date: 20100413
  Transmission Date: 20110219
  Serious: No
  Sender: FDA-Public Use
  Company Number: US-000023

PATIENT
  Weight: 74.8435 kg

DRUGS (7)
  1. KUVAN [Suspect]
     Indication: PHENYLKETONURIA
     Dosage: 91500 MG QD ORAL), (800 MG QD ORAL), (1200 MG QD ORAL), (1600 MG QD ORAL)
     Route: 048
     Dates: start: 20100107, end: 20100111
  2. KUVAN [Suspect]
     Indication: PHENYLKETONURIA
     Dosage: 91500 MG QD ORAL), (800 MG QD ORAL), (1200 MG QD ORAL), (1600 MG QD ORAL)
     Route: 048
     Dates: start: 20100124, end: 20100221
  3. KUVAN [Suspect]
     Indication: PHENYLKETONURIA
     Dosage: 91500 MG QD ORAL), (800 MG QD ORAL), (1200 MG QD ORAL), (1600 MG QD ORAL)
     Route: 048
     Dates: start: 20100222, end: 20100317
  4. TOPAMAX [Concomitant]
  5. PROTONIX [Concomitant]
  6. LEXAPRO [Concomitant]
  7. NUTRIENTS WITHOUT PHENYLALANINE [Concomitant]

REACTIONS (1)
  - MIGRAINE [None]
